FAERS Safety Report 10968455 (Version 10)
Quarter: 2016Q4

REPORT INFORMATION
  Report Type: Report from Study
  Country: BR (occurrence: BR)
  Receive Date: 20150330
  Receipt Date: 20161229
  Transmission Date: 20170206
  Serious: Yes (Other)
  Sender: FDA-Public Use
  Company Number: PHHY2015BR035425

PATIENT
  Age: 43 Year
  Sex: Female
  Weight: 63 kg

DRUGS (7)
  1. SANDOSTATIN LAR DEPOT [Suspect]
     Active Substance: OCTREOTIDE ACETATE
     Dosage: 20 MG, EACH 45 DAYS
     Route: 030
     Dates: start: 201412
  2. SANDOSTATIN LAR DEPOT [Suspect]
     Active Substance: OCTREOTIDE ACETATE
     Dosage: 20 MG, QMO
     Route: 030
  3. SANDOSTATIN LAR DEPOT [Suspect]
     Active Substance: OCTREOTIDE ACETATE
     Dosage: 20 MG, EVERY 40 DAYS
     Route: 030
  4. SANDOSTATIN LAR DEPOT [Suspect]
     Active Substance: OCTREOTIDE ACETATE
     Dosage: 20 MG, QMO, EVERY 28 DAYS
     Route: 030
     Dates: start: 20150410
  5. SANDOSTATIN LAR DEPOT [Suspect]
     Active Substance: OCTREOTIDE ACETATE
     Dosage: 20 MG, EVERY 40 DAYS
     Route: 030
     Dates: start: 201602
  6. SANDOSTATIN LAR DEPOT [Suspect]
     Active Substance: OCTREOTIDE ACETATE
     Dosage: 20 MG, QMO, EVERY 28 DAYS
     Route: 030
     Dates: start: 201409, end: 201412
  7. SANDOSTATIN LAR DEPOT [Suspect]
     Active Substance: OCTREOTIDE ACETATE
     Indication: ACROMEGALY
     Dosage: 10 MG, QMO (EVERY 28 DAYS)
     Route: 030
     Dates: start: 2003

REACTIONS (24)
  - Faeces soft [Recovering/Resolving]
  - Blood growth hormone decreased [Unknown]
  - Abdominal pain [Recovering/Resolving]
  - Pyrexia [Unknown]
  - Headache [Unknown]
  - Weight decreased [Not Recovered/Not Resolved]
  - Hyperthyroidism [Recovering/Resolving]
  - Blood growth hormone increased [Not Recovered/Not Resolved]
  - Diarrhoea [Recovering/Resolving]
  - Cardiomegaly [Unknown]
  - Influenza [Unknown]
  - Pharyngitis [Unknown]
  - Insulin-like growth factor increased [Unknown]
  - Vomiting [Recovering/Resolving]
  - Weight increased [Unknown]
  - Inappropriate schedule of drug administration [Unknown]
  - Anxiety [Unknown]
  - Colitis [Recovering/Resolving]
  - Food allergy [Not Recovered/Not Resolved]
  - Chest pain [Recovering/Resolving]
  - Liver disorder [Not Recovered/Not Resolved]
  - Peripheral swelling [Unknown]
  - Neoplasm progression [Recovering/Resolving]
  - Nervousness [Unknown]

NARRATIVE: CASE EVENT DATE: 201401
